FAERS Safety Report 5714651-5 (Version None)
Quarter: 2008Q2

REPORT INFORMATION
  Report Type: 
  Country: None (occurrence: None)
  Receive Date: 20080416
  Receipt Date: 20080311
  Transmission Date: 20081010
  Serious: Yes (Hospitalization)
  Sender: FDA-Public Use
  Company Number: DL2008100

PATIENT
  Age: 37 Year
  Sex: Female

DRUGS (3)
  1. MIFEPRISTONE [Suspect]
     Indication: ABORTION INDUCED
     Dosage: 200 MG, ORAL
     Route: 048
     Dates: start: 20071220
  2. MISOPROSTOL [Suspect]
     Dosage: 800 MCG, BUCCAL
     Route: 002
     Dates: start: 20071221
  3. PROPHYLACTIC DOXYCYCLINE [Concomitant]

REACTIONS (3)
  - ENDOMETRITIS [None]
  - MENORRHAGIA [None]
  - PYREXIA [None]
